FAERS Safety Report 9099291 (Version 1)
Quarter: 2013Q1

REPORT INFORMATION
  Report Type: Spontaneous
  Country: US (occurrence: US)
  Receive Date: 20130214
  Receipt Date: 20130214
  Transmission Date: 20140127
  Serious: Yes (Death, Other)
  Sender: FDA-Public Use
  Company Number: US-CELGENEUS-163-21660-11052542

PATIENT
  Sex: 0

DRUGS (6)
  1. ABRAXANE [Suspect]
     Indication: NEOPLASM MALIGNANT
     Dosage: 120-210 MG/M2
     Route: 065
  2. GEMCITABINE [Suspect]
     Indication: NEOPLASM MALIGNANT
     Dosage: 600-800 MG/M2
     Route: 041
  3. BEVACIZUMAB [Suspect]
     Indication: NEOPLASM MALIGNANT
     Dosage: 10MG/KG
     Route: 041
  4. PALONOSETRON [Concomitant]
     Indication: PREMEDICATION
     Route: 041
  5. DEXAMETHASONE [Concomitant]
     Indication: PREMEDICATION
     Route: 041
  6. ONDANSETRON [Concomitant]
     Indication: PREMEDICATION
     Route: 041

REACTIONS (24)
  - Disease progression [Fatal]
  - Alopecia [Unknown]
  - Diarrhoea [Unknown]
  - Fatigue [Unknown]
  - Thrombocytopenia [Unknown]
  - Neutropenia [Unknown]
  - Vomiting [Unknown]
  - Constipation [Unknown]
  - Anaemia [Unknown]
  - Decreased appetite [Unknown]
  - Abdominal pain [Unknown]
  - Bone pain [Unknown]
  - Hypertension [Unknown]
  - Neuropathy peripheral [Unknown]
  - Pyrexia [Unknown]
  - Local swelling [Unknown]
  - Epistaxis [Unknown]
  - Oral pain [Unknown]
  - Dysphagia [Unknown]
  - Nausea [Unknown]
  - Urinary tract infection [Unknown]
  - Candida infection [Unknown]
  - Confusional state [Unknown]
  - Oedema peripheral [Unknown]
